FAERS Safety Report 7885068-2 (Version None)
Quarter: 2011Q4

REPORT INFORMATION
  Report Type: 
  Country: None (occurrence: None)
  Receive Date: 20111102
  Receipt Date: 20111027
  Transmission Date: 20120403
  Serious: Yes (Other)
  Sender: FDA-Public Use
  Company Number: US-BRISTOL-MYERS SQUIBB COMPANY-15920994

PATIENT
  Age: 64 Year
  Sex: Male
  Weight: 81 kg

DRUGS (14)
  1. SIMVASTATIN [Concomitant]
  2. CIPROFLOXACIN [Concomitant]
  3. FLUOROURACIL [Concomitant]
  4. JANUMET [Concomitant]
     Dosage: DOSE:50/500 (UNITS NOT SPECIFIED)
  5. TOPROL-XL [Concomitant]
     Dosage: FREQ:25*L
  6. COUMADIN [Suspect]
     Indication: CEREBROVASCULAR ACCIDENT
     Dosage: FOR 7 YEARS,DOSE REDUCED TO 2.5MG ON 2011,DOSE:3MG,ONSET DT:21APR05
     Route: 048
     Dates: start: 20040101
  7. COUMADIN [Suspect]
     Indication: ATRIAL FIBRILLATION
     Dosage: FOR 7 YEARS,DOSE REDUCED TO 2.5MG ON 2011,DOSE:3MG,ONSET DT:21APR05
     Route: 048
     Dates: start: 20040101
  8. IRINOTECAN HCL [Concomitant]
  9. GLUCOTROL [Concomitant]
  10. PROTONIX [Concomitant]
  11. ALTACE [Concomitant]
  12. COUMADIN [Suspect]
     Indication: CEREBRAL ARTERY EMBOLISM
     Dosage: FOR 7 YEARS,DOSE REDUCED TO 2.5MG ON 2011,DOSE:3MG,ONSET DT:21APR05
     Route: 048
     Dates: start: 20040101
  13. ZOLOFT [Concomitant]
  14. LEUCOVORIN CALCIUM [Concomitant]

REACTIONS (5)
  - ATRIAL FIBRILLATION [None]
  - COLON CANCER METASTATIC [None]
  - INTERNATIONAL NORMALISED RATIO INCREASED [None]
  - HEPATOMEGALY [None]
  - LEUKOCYTOSIS [None]
